FAERS Safety Report 24989226 (Version 5)
Quarter: 2025Q1

REPORT INFORMATION
  Report Type: Spontaneous
  Country: CN (occurrence: CN)
  Receive Date: 20250220
  Receipt Date: 20250328
  Transmission Date: 20250409
  Serious: Yes (Hospitalization)
  Sender: TAIHO ONCOLOGY INC
  Company Number: CN-TAIHOP-2025-001760

PATIENT
  Age: 61 Year
  Sex: Male
  Weight: 79 kg

DRUGS (3)
  1. TIPIRACIL HYDROCHLORIDE\TRIFLURIDINE [Suspect]
     Active Substance: TIPIRACIL HYDROCHLORIDE\TRIFLURIDINE
     Indication: Gastric cancer
     Dosage: ON DAYS 1 TO 5 AND 8 TO 12 OF EVERY 28-DAY CYCLE.
     Route: 048
     Dates: start: 20250109, end: 20250120
  2. MEGESTROL ACETATE [Concomitant]
     Active Substance: MEGESTROL ACETATE
     Indication: Decreased appetite
     Dates: start: 20250109, end: 20250129
  3. COMPOUND GLYCYRRHIZIN [Concomitant]
     Indication: Gastrointestinal disorder prophylaxis
     Dates: start: 20250109, end: 20250123

REACTIONS (1)
  - Malignant neoplasm progression [Not Recovered/Not Resolved]

NARRATIVE: CASE EVENT DATE: 20250205
